FAERS Safety Report 7032830-4 (Version None)
Quarter: 2010Q4

REPORT INFORMATION
  Report Type: 
  Country: None (occurrence: None)
  Receive Date: 20101005
  Receipt Date: 20080623
  Transmission Date: 20110411
  Serious: Yes (Hospitalization)
  Sender: FDA-Public Use
  Company Number: 2007PV000046

PATIENT
  Age: 64 Year
  Sex: Female

DRUGS (8)
  1. DEPOCYT [Suspect]
     Indication: LYMPHOMA
     Dosage: 50 MG; X4
     Dates: start: 20070614, end: 20070927
  2. MABTHERA [Concomitant]
  3. CHLORAMINOPHEN-RITUXIMAB [Concomitant]
  4. CORTANCYL [Concomitant]
  5. TAHOR [Concomitant]
  6. AMILORIDE HYDROCHLORIDE [Concomitant]
  7. PRAZOSIN HCL [Concomitant]
  8. MODOPAR [Concomitant]

REACTIONS (4)
  - CAUDA EQUINA SYNDROME [None]
  - DRUG TOXICITY [None]
  - EXTRAPYRAMIDAL DISORDER [None]
  - SPINAL OSTEOARTHRITIS [None]
